FAERS Safety Report 24586783 (Version 3)
Quarter: 2024Q4

REPORT INFORMATION
  Report Type: Report from Study
  Country: CA (occurrence: CA)
  Receive Date: 20241107
  Receipt Date: 20241223
  Transmission Date: 20250114
  Serious: No
  Sender: TAKEDA
  Company Number: CA-TAKEDA-2024TUS065405

PATIENT
  Sex: Male

DRUGS (3)
  1. HUMAN IMMUNOGLOBULIN G\HYALURONIDASE RECOMBINANT HUMAN [Suspect]
     Active Substance: HUMAN IMMUNOGLOBULIN G\HYALURONIDASE (HUMAN RECOMBINANT)
     Indication: Secondary immunodeficiency
     Dosage: 30 GRAM, Q4WEEKS
     Dates: start: 20240415
  2. HUMAN IMMUNOGLOBULIN G\HYALURONIDASE RECOMBINANT HUMAN [Suspect]
     Active Substance: HUMAN IMMUNOGLOBULIN G\HYALURONIDASE (HUMAN RECOMBINANT)
     Dosage: 30 GRAM, Q4WEEKS
  3. HUMAN IMMUNOGLOBULIN G\HYALURONIDASE RECOMBINANT HUMAN [Suspect]
     Active Substance: HUMAN IMMUNOGLOBULIN G\HYALURONIDASE (HUMAN RECOMBINANT)
     Dosage: 30 GRAM, Q4WEEKS

REACTIONS (10)
  - Discomfort [Unknown]
  - Disturbance in attention [Unknown]
  - Feeling abnormal [Unknown]
  - Bradykinesia [Unknown]
  - Memory impairment [Unknown]
  - Inappropriate schedule of product administration [Unknown]
  - Malaise [Unknown]
  - Asthenia [Unknown]
  - Swelling [Unknown]
  - Pyrexia [Unknown]
